FAERS Safety Report 12941599 (Version 1)
Quarter: 2016Q4

REPORT INFORMATION
  Report Type: Spontaneous
  Country: ES (occurrence: ES)
  Receive Date: 20161114
  Receipt Date: 20161114
  Transmission Date: 20170207
  Serious: Yes (Death, Life-Threatening)
  Sender: FDA-Public Use
  Company Number: ES-ASTRAZENECA-2016SF18695

PATIENT
  Age: 84 Year
  Sex: Female

DRUGS (3)
  1. QUETIAPINE. [Suspect]
     Active Substance: QUETIAPINE
     Route: 048
  2. FENTANYL. [Suspect]
     Active Substance: FENTANYL
     Dosage: 25 MCG EVERY THREE DAYS
     Route: 065
  3. PAROXETINE. [Suspect]
     Active Substance: PAROXETINE
     Route: 065

REACTIONS (2)
  - Serotonin syndrome [Not Recovered/Not Resolved]
  - Cardio-respiratory arrest [Fatal]
